FAERS Safety Report 6516125-0 (Version None)
Quarter: 2009Q4

REPORT INFORMATION
  Report Type: 
  Country: None (occurrence: None)
  Receive Date: 20091223
  Receipt Date: 20091221
  Transmission Date: 20100525
  Serious: Yes (Death)
  Sender: FDA-Public Use
  Company Number: TW-ABBOTT-09P-153-0615838-00

PATIENT
  Age: 73 Year
  Sex: Male

DRUGS (10)
  1. CLARITHROMYCIN [Suspect]
     Indication: DRUG USE FOR UNKNOWN INDICATION
  2. CLARITHROMYCIN [Suspect]
  3. CLARITHROMYCIN [Suspect]
  4. RIFAMPIN [Concomitant]
     Indication: DRUG USE FOR UNKNOWN INDICATION
  5. RIFAMPIN [Concomitant]
  6. ETHAMBUTOL HYDROCHLORIDE [Concomitant]
     Indication: DRUG USE FOR UNKNOWN INDICATION
  7. ETHAMBUTOL HYDROCHLORIDE [Concomitant]
  8. ETHAMBUTOL HYDROCHLORIDE [Concomitant]
  9. CIPROFLOXACIN [Concomitant]
     Indication: DRUG USE FOR UNKNOWN INDICATION
  10. AMIKACIN [Concomitant]
     Indication: DRUG USE FOR UNKNOWN INDICATION

REACTIONS (1)
  - PNEUMONIA BACTERIAL [None]
